FAERS Safety Report 10494540 (Version 2)
Quarter: 2018Q1

REPORT INFORMATION
  Report Type: Spontaneous
  Country: CA (occurrence: CA)
  Receive Date: 20141001
  Receipt Date: 20180315
  Transmission Date: 20180508
  Serious: Yes (Other)
  Sender: FDA-Public Use
  Company Number: 2014-2166-SPO

PATIENT
  Age: 61 Year
  Sex: Female

DRUGS (7)
  1. VALERIAN (VALERIANA OFFICINALIS) [Concomitant]
     Route: 065
  2. PROBIOTICS (PROBIOTICS NOS) [Concomitant]
     Route: 065
  3. MELATONIN [Concomitant]
     Active Substance: MELATONIN
     Route: 065
  4. VITAMIN D (ERGOCALCIFEROL) [Concomitant]
     Active Substance: ERGOCALCIFEROL
     Route: 065
  5. ESTROGEL [Suspect]
     Active Substance: ESTRADIOL
     Indication: MENOPAUSAL SYMPTOMS
     Route: 065
     Dates: start: 2012, end: 20180302
  6. OMEGA-3 (OMEGA-3 MARINE TRIGLYCERIDES) [Concomitant]
     Route: 065
  7. ASCORBIC ACID. [Concomitant]
     Active Substance: ASCORBIC ACID
     Route: 065

REACTIONS (3)
  - Treatment noncompliance [None]
  - Varicose vein [Unknown]
  - Alopecia [Unknown]

NARRATIVE: CASE EVENT DATE: 2013
